FAERS Safety Report 7178239 (Version 3)
Quarter: 2013Q2

REPORT INFORMATION
  Report Type: Report from Study
  Country: US (occurrence: US)
  Receive Date: 20091116
  Receipt Date: 20130422
  Transmission Date: 20140414
  Serious: Yes (Other)
  Sender: FDA-Public Use
  Company Number: US-PFIZER INC-2009293042

PATIENT
  Age: 48 Year
  Sex: Male
  Weight: 99.3 kg

DRUGS (12)
  1. CHANTIX [Suspect]
     Indication: SMOKING CESSATION THERAPY
     Dosage: UNK
     Route: 048
     Dates: end: 2009
  2. FLUOXETINE HCL [Interacting]
     Indication: NERVOUS SYSTEM DISORDER
     Dosage: 20 MG, 2X/DAY
  3. NITROGLYCERIN [Interacting]
     Indication: CHEST PAIN
     Dosage: UNK
  4. METFORMIN HCL [Interacting]
     Indication: DIABETES MELLITUS
     Dosage: 850 MG, 2X/DAY
  5. HALOPERIDOL [Interacting]
     Indication: NERVOUS SYSTEM DISORDER
     Dosage: 1 DF, 1X/DAY
  6. GEMFIBROZIL [Interacting]
     Dosage: 60 MG, 2X/DAY
  7. NIFEDIPINE [Interacting]
     Indication: CARDIAC DISORDER
     Dosage: 30 MG, UNK
  8. ATENOLOL [Interacting]
     Indication: CARDIAC DISORDER
     Dosage: 50 MG, UNK
  9. LITHIUM CARBONATE [Interacting]
     Indication: NERVOUS SYSTEM DISORDER
     Dosage: 300 MG, UNK
  10. LISINOPRIL [Interacting]
     Indication: CARDIAC DISORDER
     Dosage: 40 MG, 2X/DAY
  11. LOVASTATIN [Interacting]
     Indication: CARDIAC DISORDER
     Dosage: 40 MG, UNK
  12. OMEPRAZOLE [Interacting]
     Indication: GASTROINTESTINAL DISORDER
     Dosage: 20 MG, 2X/DAY

REACTIONS (9)
  - Mood swings [Recovering/Resolving]
  - Aggression [Recovering/Resolving]
  - Loss of consciousness [Unknown]
  - Chest pain [Recovering/Resolving]
  - Drug interaction [Unknown]
  - Insomnia [Unknown]
  - Abnormal behaviour [Unknown]
  - Disturbance in attention [Unknown]
  - Off label use [Unknown]
